FAERS Safety Report 8229168 (Version 2)
Quarter: 2025Q2

REPORT INFORMATION
  Report Type: Spontaneous
  Country: DK (occurrence: DK)
  Receive Date: 20111104
  Receipt Date: 20250409
  Transmission Date: 20250716
  Serious: Yes (Other)
  Sender: PFIZER
  Company Number: None

PATIENT
  Age: 61 Year
  Sex: Female

DRUGS (7)
  1. CLINDAMYCIN HYDROCHLORIDE [Suspect]
     Active Substance: CLINDAMYCIN HYDROCHLORIDE
     Indication: Antibiotic therapy
     Dates: start: 200805
  2. MEROPENEM [Suspect]
     Active Substance: MEROPENEM
     Indication: Antibiotic therapy
     Dates: start: 200805
  3. KEFLEX [Suspect]
     Active Substance: CEPHALEXIN
     Indication: Antibiotic therapy
     Dates: start: 200805
  4. ZINACEF [Suspect]
     Active Substance: CEFUROXIME SODIUM
     Indication: Antibiotic therapy
     Route: 042
     Dates: start: 200801
  5. ZINACEF [Suspect]
     Active Substance: CEFUROXIME SODIUM
     Dates: start: 200805
  6. GENTAMICIN [Suspect]
     Active Substance: GENTAMICIN
     Indication: Antibiotic therapy
     Dates: start: 200805
  7. DICLOXACILLIN SODIUM [Suspect]
     Active Substance: DICLOXACILLIN SODIUM
     Indication: Antibiotic therapy
     Dates: start: 200801

REACTIONS (1)
  - Cutaneous vasculitis [Recovered/Resolved]

NARRATIVE: CASE EVENT DATE: 20080501
